APPROVED DRUG PRODUCT: TEMOZOLOMIDE
Active Ingredient: TEMOZOLOMIDE
Strength: 5MG
Dosage Form/Route: CAPSULE;ORAL
Application: A207658 | Product #001 | TE Code: AB
Applicant: DEVA HOLDING AS
Approved: Apr 26, 2017 | RLD: No | RS: No | Type: RX